FAERS Safety Report 8227763-1 (Version None)
Quarter: 2012Q1

REPORT INFORMATION
  Report Type: 
  Country: None (occurrence: None)
  Receive Date: 20120322
  Receipt Date: 20120313
  Transmission Date: 20120608
  Serious: Yes (Hospitalization, Other)
  Sender: FDA-Public Use
  Company Number: US-NOVOPROD-347138

PATIENT
  Sex: Female

DRUGS (2)
  1. NOVOLOG [Suspect]
     Indication: DIABETES MELLITUS
     Dosage: UNKNOWN
     Route: 058
     Dates: start: 20120308
  2. NOVOLIN 70/30 [Suspect]
     Indication: DIABETES MELLITUS
     Dosage: UNKNOWN
     Route: 058
     Dates: start: 20120308

REACTIONS (3)
  - MATERNAL EXPOSURE DURING PREGNANCY [None]
  - COMPLICATION OF PREGNANCY [None]
  - RASH GENERALISED [None]
